FAERS Safety Report 6242058-3 (Version None)
Quarter: 2009Q2

REPORT INFORMATION
  Report Type: 
  Country: None (occurrence: None)
  Receive Date: 20090622
  Receipt Date: 20090608
  Transmission Date: 20091009
  Serious: Yes (Hospitalization)
  Sender: FDA-Public Use
  Company Number: 8030884

PATIENT
  Age: 60 Year
  Sex: Female
  Weight: 74.5 kg

DRUGS (5)
  1. CDP870 [Suspect]
     Indication: RHEUMATOID ARTHRITIS
     Dosage: 200 MG 1/2W SC
     Route: 058
     Dates: start: 20050705, end: 20060620
  2. CDP870 [Suspect]
     Indication: RHEUMATOID ARTHRITIS
     Dosage: 400 MG 1/2W SC
     Route: 058
     Dates: start: 20060704, end: 20080213
  3. CDP870 [Suspect]
     Indication: RHEUMATOID ARTHRITIS
     Dosage: 200 MG 1/2W SC
     Route: 058
     Dates: start: 20080226, end: 20080312
  4. METHOTREXATE [Concomitant]
  5. DICLOFENAC [Concomitant]

REACTIONS (6)
  - BLOOD ALBUMIN DECREASED [None]
  - BRONCHITIS [None]
  - HAEMOGLOBIN INCREASED [None]
  - PROTEIN TOTAL DECREASED [None]
  - PROTEIN URINE PRESENT [None]
  - PYREXIA [None]
